FAERS Safety Report 8257873-4 (Version None)
Quarter: 2012Q1

REPORT INFORMATION
  Report Type: 
  Country: None (occurrence: None)
  Receive Date: 20111211
  Receipt Date: 20111027
  Transmission Date: 20120608
  Serious: No
  Sender: FDA-Public Use
  Company Number: 201110065

PATIENT
  Age: 61 Year
  Sex: Female

DRUGS (3)
  1. LIDOCAINE [Suspect]
     Indication: NERVE BLOCK
     Dosage: 15 ML, INJECTION 10 ML, INJECTION
     Dates: start: 20111019, end: 20111019
  2. LIDOCAINE [Suspect]
     Indication: NERVE BLOCK
     Dosage: 15 ML, INJECTION 10 ML, INJECTION
     Dates: start: 20111020, end: 20111020
  3. XIAFLEX (CLOSTRIDIAL COLLAGENASE) [Suspect]
     Indication: DUPUYTREN'S CONTRACTURE
     Dosage: 0.58 MG, 1 IN 1 D, INTRALESIONAL
     Route: 026
     Dates: start: 20111019, end: 20111019

REACTIONS (1)
  - LACERATION [None]
